FAERS Safety Report 5104930-7 (Version None)
Quarter: 2006Q3

REPORT INFORMATION
  Report Type: 
  Country: None (occurrence: None)
  Receive Date: 20060914
  Receipt Date: 20060905
  Transmission Date: 20061208
  Serious: Yes (Hospitalization, Other)
  Sender: FDA-Public Use
  Company Number: AU-NOVOPROD-256875

PATIENT
  Age: 57 Year
  Sex: Male
  Weight: 100 kg

DRUGS (2)
  1. NOVOSEVEN [Suspect]
     Indication: HAEMORRHAGE
     Dosage: 4.8 MG, UNK
     Dates: start: 20040519
  2. DEXMETHSONE [Concomitant]

REACTIONS (3)
  - GRAND MAL CONVULSION [None]
  - PULMONARY EMBOLISM [None]
  - WOUND INFECTION [None]
